FAERS Safety Report 8061470-3 (Version None)
Quarter: 2012Q1

REPORT INFORMATION
  Report Type: 
  Country: None (occurrence: None)
  Receive Date: 20120120
  Receipt Date: 20111214
  Transmission Date: 20120608
  Serious: No
  Sender: FDA-Public Use
  Company Number: US-ALLERGAN-1115637US

PATIENT
  Age: 77 Year
  Sex: Female

DRUGS (3)
  1. HYPERTENSION MEDICATION [Concomitant]
     Indication: HYPERTENSION
  2. HIGH CHOLESTEROL MEDICATION [Concomitant]
     Indication: BLOOD CHOLESTEROL INCREASED
  3. RESTASIS [Suspect]
     Indication: DRY EYE
     Dosage: 2 GTT, BID
     Route: 047
     Dates: start: 20111122

REACTIONS (5)
  - VISUAL IMPAIRMENT [None]
  - VISION BLURRED [None]
  - EYE DISCHARGE [None]
  - EYE IRRITATION [None]
  - SKIN IRRITATION [None]
